FAERS Safety Report 9399934 (Version 1)
Quarter: 2013Q3

REPORT INFORMATION
  Report Type: Spontaneous
  Country: US (occurrence: US)
  Receive Date: 20130715
  Receipt Date: 20130715
  Transmission Date: 20140515
  Serious: No
  Sender: FDA-Public Use
  Company Number: US-PFIZER INC-2013204444

PATIENT
  Sex: Female

DRUGS (1)
  1. LYRICA [Suspect]
     Indication: AUTOIMMUNE NEUROPATHY
     Dosage: 75 MG, 2X/DAY
     Route: 048
     Dates: start: 20130707

REACTIONS (3)
  - Off label use [Unknown]
  - Dizziness [Recovered/Resolved]
  - Neuralgia [Unknown]
